FAERS Safety Report 15809783 (Version 1)
Quarter: 2019Q1

REPORT INFORMATION
  Report Type: Spontaneous
  Country: KR (occurrence: KR)
  Receive Date: 20190111
  Receipt Date: 20190111
  Transmission Date: 20190417
  Serious: Yes (Other)
  Sender: FDA-Public Use
  Company Number: KR-STRIDES ARCOLAB LIMITED-2019SP000384

PATIENT
  Age: 50 Year
  Sex: Male

DRUGS (2)
  1. VANCOMYCIN [Suspect]
     Active Substance: VANCOMYCIN
     Indication: PROPHYLAXIS
  2. VANCOMYCIN [Suspect]
     Active Substance: VANCOMYCIN
     Indication: ENDOPHTHALMITIS
     Dosage: UNK
     Route: 047

REACTIONS (7)
  - Corneal oedema [Recovered/Resolved]
  - Visual impairment [Recovered/Resolved]
  - Corneal neovascularisation [Recovered/Resolved]
  - Retinal haemorrhage [Recovered/Resolved]
  - Anterior chamber inflammation [Recovered/Resolved]
  - Vascular occlusion [Recovered/Resolved]
  - Retinal vasculitis [Recovered/Resolved]
